FAERS Safety Report 4416433-3 (Version None)
Quarter: 2004Q3

REPORT INFORMATION
  Report Type: 
  Country: None (occurrence: None)
  Receive Date: 20040802
  Receipt Date: 20040721
  Transmission Date: 20050211
  Serious: Yes (Other)
  Sender: FDA-Public Use
  Company Number: 2004201860DE

PATIENT
  Sex: Female

DRUGS (2)
  1. CLINDAMYCIN HYDROCHLORIDE [Suspect]
     Indication: TOOTH ABSCESS
     Dosage: SEE IMAGE
     Route: 048
     Dates: start: 20030610
  2. CLINDAMYCIN HYDROCHLORIDE [Suspect]
     Indication: TOOTH ABSCESS
     Dosage: SEE IMAGE
     Route: 048
     Dates: start: 20030726

REACTIONS (6)
  - ANAESTHETIC COMPLICATION [None]
  - IMPAIRED HEALING [None]
  - NERVE BLOCK [None]
  - PARESIS [None]
  - PERONEAL NERVE PALSY [None]
  - POST PROCEDURAL COMPLICATION [None]
